FAERS Safety Report 23802609 (Version 2)
Quarter: 2025Q2

REPORT INFORMATION
  Report Type: Spontaneous
  Country: DE (occurrence: DE)
  Receive Date: 20240501
  Receipt Date: 20250618
  Transmission Date: 20250716
  Serious: Yes (Life-Threatening, Hospitalization, Other)
  Sender: AUROBINDO
  Company Number: DE-EMA-DD-20200303-agrahari_P-150727

PATIENT
  Age: 63 Year
  Sex: Female
  Weight: 93 kg

DRUGS (9)
  1. LEFLUNOMIDE [Interacting]
     Active Substance: LEFLUNOMIDE
     Indication: Rheumatoid arthritis
     Route: 065
     Dates: start: 2014
  2. METHOTREXATE [Interacting]
     Active Substance: METHOTREXATE
     Indication: Rheumatoid arthritis
     Dosage: 15 MILLIGRAM, EVERY WEEK
     Route: 065
     Dates: start: 2021
  3. FUROSEMIDE [Concomitant]
     Active Substance: FUROSEMIDE
     Indication: Product used for unknown indication
     Dosage: 40 MILLIGRAM, ONCE A DAY FOR 4 WEEKS
     Route: 065
  4. FOLIC ACID [Concomitant]
     Active Substance: FOLIC ACID
     Indication: Rheumatoid arthritis
     Route: 065
  5. PANTOPRAZOLE [Concomitant]
     Active Substance: PANTOPRAZOLE
     Indication: Chronic gastritis
     Dosage: 40 MILLIGRAM, TWO TIMES A DAY
     Route: 065
  6. METAMIZOLE [Concomitant]
     Active Substance: METAMIZOLE
     Indication: Analgesic therapy
     Route: 065
  7. SIMVASTATIN [Concomitant]
     Active Substance: SIMVASTATIN
     Indication: Hyperlipidaemia
     Dosage: 20 MILLIGRAM, ONCE A DAY
     Route: 065
  8. IRON [Concomitant]
     Active Substance: IRON
     Indication: Mineral supplementation
     Route: 065
  9. INSULIN NOS [Concomitant]
     Active Substance: INSULIN NOS
     Indication: Type 2 diabetes mellitus
     Route: 065

REACTIONS (28)
  - Respiratory alkalosis [Recovered/Resolved]
  - Drug interaction [Unknown]
  - Acute hepatic failure [Recovered/Resolved]
  - Coombs negative haemolytic anaemia [Recovered/Resolved]
  - Hypovolaemia [Recovered/Resolved]
  - Thrombocytopenia [Recovered/Resolved]
  - Hypoalbuminaemia [Recovered/Resolved]
  - Metabolic alkalosis [Recovered/Resolved]
  - Hypokalaemia [Recovered/Resolved]
  - Hepatic cirrhosis [Recovered/Resolved]
  - Drug-induced liver injury [Recovered/Resolved]
  - Acute kidney injury [Recovered/Resolved]
  - Thrombotic microangiopathy [Recovered/Resolved]
  - Immunosuppressant drug level increased [Recovered/Resolved]
  - Overdose [Recovered/Resolved]
  - Sinus tachycardia [Recovered/Resolved]
  - Haemochromatosis [Recovered/Resolved]
  - Livedo reticularis [Recovered/Resolved]
  - Nephrotic syndrome [Recovered/Resolved]
  - Anaemia folate deficiency [Recovered/Resolved]
  - Coagulopathy [Recovered/Resolved]
  - Hepatosplenomegaly [Recovered/Resolved]
  - Haemolytic anaemia [Recovered/Resolved]
  - Hepatotoxicity [Recovered/Resolved]
  - Escherichia urinary tract infection [Recovered/Resolved]
  - Pneumonia influenzal [Recovered/Resolved]
  - Drug half-life increased [Recovered/Resolved]
  - Pulmonary oedema [Recovered/Resolved]
